FAERS Safety Report 18845596 (Version 1)
Quarter: 2021Q1

REPORT INFORMATION
  Report Type: Report from Study
  Country: US (occurrence: US)
  Receive Date: 20210203
  Receipt Date: 20210203
  Transmission Date: 20210419
  Serious: No
  Sender: FDA-Public Use
  Company Number: US-EXELIXIS-CABO-20030833

PATIENT
  Sex: Male

DRUGS (2)
  1. CABOMETYX [Suspect]
     Active Substance: CABOZANTINIB S-MALATE
     Indication: RENAL CANCER
     Dosage: 60 MG, QD (20 MG X3 TABLETS)
     Route: 048
     Dates: start: 20200408
  2. CABOMETYX [Suspect]
     Active Substance: CABOZANTINIB S-MALATE
     Indication: BONE CANCER
     Dosage: 20 MG, QD
     Route: 048
     Dates: start: 20200626

REACTIONS (6)
  - White blood cell count decreased [Unknown]
  - Diarrhoea [Unknown]
  - Candida infection [Unknown]
  - Fatigue [Unknown]
  - Visual impairment [Unknown]
  - Dizziness [Unknown]
